FAERS Safety Report 6425218-8 (Version None)
Quarter: 2009Q4

REPORT INFORMATION
  Report Type: 
  Country: None (occurrence: None)
  Receive Date: 20091103
  Receipt Date: 20091023
  Transmission Date: 20100525
  Serious: Yes (Other)
  Sender: FDA-Public Use
  Company Number: US-BRISTOL-MYERS SQUIBB COMPANY-14830475

PATIENT

DRUGS (3)
  1. AMPHOTERICIN B [Suspect]
     Route: 042
  2. WARFARIN SODIUM [Suspect]
  3. FLUCONAZOLE [Suspect]
     Dosage: AMB 0.7MG/KG/DAY+FLUCONAZOLE 800MG/DAY FOR 14 DAYS FOLLOWED BY FLUCONAZOLE 800MG/DAY FOR 56 DAYS

REACTIONS (1)
  - SUBDURAL HAEMATOMA [None]
